FAERS Safety Report 7998950-2 (Version None)
Quarter: 2011Q4

REPORT INFORMATION
  Report Type: 
  Country: None (occurrence: None)
  Receive Date: 20111221
  Receipt Date: 20111202
  Transmission Date: 20120403
  Serious: Yes (Hospitalization)
  Sender: FDA-Public Use
  Company Number: ES-JNJFOC-20111006690

PATIENT
  Sex: Male
  Weight: 69.2 kg

DRUGS (6)
  1. IBUPROFEN [Concomitant]
     Indication: PYREXIA
     Route: 065
  2. DARUNAVIR [Suspect]
     Indication: HIV INFECTION
     Route: 048
     Dates: start: 20110531
  3. RITONAVIR [Suspect]
     Indication: HIV INFECTION
     Route: 048
     Dates: start: 20110531
  4. TRUVADA [Suspect]
     Indication: HIV INFECTION
     Route: 065
     Dates: start: 20110531
  5. ACETAMINOPHEN [Concomitant]
     Indication: PYREXIA
     Route: 065
     Dates: start: 20111008
  6. OMEPRAZOLE [Concomitant]
     Indication: GASTROINTESTINAL DISORDER THERAPY
     Route: 065
     Dates: start: 20111001, end: 20111008

REACTIONS (2)
  - HODGKIN'S DISEASE [None]
  - PYREXIA [None]
